FAERS Safety Report 13328821 (Version 1)
Quarter: 2017Q1

REPORT INFORMATION
  Report Type: Spontaneous
  Country: US (occurrence: US)
  Receive Date: 20170312
  Receipt Date: 20170312
  Transmission Date: 20170428
  Serious: No
  Sender: FDA-Public Use
  Company Number: None

PATIENT
  Sex: Female

DRUGS (1)
  1. TRI-ESTARYLLA [Suspect]
     Active Substance: ETHINYL ESTRADIOL\NORGESTIMATE
     Indication: ORAL CONTRACEPTION

REACTIONS (4)
  - Inappropriate schedule of drug administration [None]
  - Product blister packaging issue [None]
  - Product substitution issue [None]
  - Drug dispensing error [None]

NARRATIVE: CASE EVENT DATE: 20170125
